FAERS Safety Report 24655374 (Version 1)
Quarter: 2024Q4

REPORT INFORMATION
  Report Type: Spontaneous
  Country: US (occurrence: US)
  Receive Date: 20241123
  Receipt Date: 20241123
  Transmission Date: 20250115
  Serious: No
  Sender: Kenvue
  Company Number: US-KENVUE-20241031838

PATIENT
  Age: 54 Year

DRUGS (3)
  1. WOMENS ROGAINE [Suspect]
     Active Substance: MINOXIDIL
     Indication: Product used for unknown indication
     Route: 065
  2. NANOXIDIL [Concomitant]
     Indication: Product used for unknown indication
     Route: 065
  3. Shampoo + Conditioner [Concomitant]
     Indication: Product used for unknown indication
     Route: 065

REACTIONS (1)
  - Contraindicated product administered [Unknown]
